FAERS Safety Report 20954194 (Version 1)
Quarter: 2022Q2

REPORT INFORMATION
  Report Type: Spontaneous
  Country: US (occurrence: US)
  Receive Date: 20220614
  Receipt Date: 20220614
  Transmission Date: 20220721
  Serious: Yes (Other)
  Sender: FDA-Public Use
  Company Number: US-ROCHE-3106653

PATIENT
  Sex: Female

DRUGS (22)
  1. CLONAZEPAM [Suspect]
     Active Substance: CLONAZEPAM
     Indication: Product used for unknown indication
     Dosage: 1 MG TABLET 1.5 TO 2 TABLETS ORALLY THREE TIMES A DAY
     Route: 048
  2. OCREVUS [Suspect]
     Active Substance: OCRELIZUMAB
     Indication: Multiple sclerosis
     Dosage: 300 MG/10 ML SOLUTION AS DIRECTED
     Route: 042
  3. LYRICA [Concomitant]
     Active Substance: PREGABALIN
     Dosage: DAILY DOSE: 225 MILLIGRAM
     Route: 048
  4. MORPHINE SULFATE [Concomitant]
     Active Substance: MORPHINE SULFATE
     Indication: Pain
     Dosage: EVERY 6 HOURS?DAILY DOSE: 30 MILLIGRAM
     Route: 048
  5. COLACE [Concomitant]
     Active Substance: DOCUSATE SODIUM
     Dosage: DAILY DOSE: 100 MILLIGRAM
     Route: 048
  6. VITAMIN D3 [Concomitant]
     Active Substance: CHOLECALCIFEROL
     Route: 048
  7. BACLOFEN [Concomitant]
     Active Substance: BACLOFEN
     Dosage: WITH FOOD OR MILK?DAILY DOSE: 20 MILLIGRAM
     Route: 048
  8. RANITIDINE [Concomitant]
     Active Substance: RANITIDINE
     Dosage: DAILY DOSE: 150 MILLIGRAM
     Route: 048
  9. AMITIZA [Concomitant]
     Active Substance: LUBIPROSTONE
     Dosage: AT BED TIME?DAILY DOSE: 24 MICROGRAM
     Route: 048
  10. ARICEPT [Concomitant]
     Active Substance: DONEPEZIL HYDROCHLORIDE
     Dosage: AT BED TIME?DAILY DOSE: 10 MILLIGRAM
     Route: 048
  11. TEGRETOL [Concomitant]
     Active Substance: CARBAMAZEPINE
     Dosage: 2 TABLET IN AM AND 3 TABLET IN PM?DAILY DOSE: 200 MILLIGRAM
     Route: 048
  12. ZOLOFT [Concomitant]
     Active Substance: SERTRALINE HYDROCHLORIDE
     Dosage: DAILY DOSE: 50 MILLIGRAM
     Route: 048
  13. TIZANIDINE HYDROCHLORIDE [Concomitant]
     Active Substance: TIZANIDINE HYDROCHLORIDE
     Dosage: DAILY DOSE: 2 MILLIGRAM
     Route: 048
  14. COPAXONE [Concomitant]
     Active Substance: GLATIRAMER ACETATE
     Dosage: DAILY DOSE: 40 MILLIGRAM/ML
     Route: 058
  15. CARBAMAZEPINE [Concomitant]
     Active Substance: CARBAMAZEPINE
     Dosage: 2 TABLET IN AM AND 2 TABLET IN PM
     Route: 048
  16. SERTRALINE HYDROCHLORIDE [Concomitant]
     Active Substance: SERTRALINE HYDROCHLORIDE
     Dosage: DAILY DOSE: 25 MILLIGRAM
     Route: 048
  17. OXYBUTYNIN CHLORIDE [Concomitant]
     Active Substance: OXYBUTYNIN CHLORIDE
     Dosage: DAILY DOSE: 5 MILLIGRAM
     Route: 048
  18. LEVETIRACETAM [Concomitant]
     Active Substance: LEVETIRACETAM
     Dosage: DAILY DOSE: 1000 MILLIGRAM
     Route: 048
  19. METHYLPREDNISOLONE SODIUM SUCCINATE [Concomitant]
     Active Substance: METHYLPREDNISOLONE SODIUM SUCCINATE
     Dosage: DAILY DOSE: 1000 MILLIGRAM
     Route: 065
  20. EPINEPHRINE HYDROCHLORIDE [Concomitant]
     Active Substance: EPINEPHRINE HYDROCHLORIDE
     Dosage: DAILY DOSE: 1 MILLIGRAM/ML
     Route: 031
  21. DIPHENHYDRAMINE HYDROCHLORIDE [Concomitant]
     Active Substance: DIPHENHYDRAMINE HYDROCHLORIDE
     Dosage: DAILY DOSE: 50 MILLIGRAM/ML
     Route: 065
  22. GLATIRAMER [Concomitant]
     Active Substance: GLATIRAMER
     Route: 065

REACTIONS (4)
  - Seizure [Unknown]
  - Eye pain [Unknown]
  - Dizziness [Unknown]
  - Visual impairment [Unknown]
